FAERS Safety Report 8217516-2 (Version None)
Quarter: 2012Q1

REPORT INFORMATION
  Report Type: 
  Country: None (occurrence: None)
  Receive Date: 20120315
  Receipt Date: 20120229
  Transmission Date: 20120608
  Serious: Yes (Other)
  Sender: FDA-Public Use
  Company Number: US-2011-10622

PATIENT
  Age: 7 Year
  Sex: Male

DRUGS (10)
  1. METRONIDAZOLE [Concomitant]
  2. ANTI-THYMOCYTE GLOBULIN RABBIT NOS [Concomitant]
  3. BUSULFAN [Suspect]
     Indication: STEM CELL TRANSPLANT
     Dosage: SEE IMAGE
     Route: 042
  4. BUSULFAN [Suspect]
     Indication: STEM CELL TRANSPLANT
     Dosage: SEE IMAGE
     Route: 042
  5. BUSULFAN [Suspect]
     Indication: STEM CELL TRANSPLANT
     Dosage: SEE IMAGE
     Route: 042
  6. THIOTEPA [Concomitant]
  7. CLOFARABINE (CLOFARABINE) [Concomitant]
  8. MYCOPHENOLATE MOFETIL (MYCOPHENOLATE MOFETI) [Concomitant]
  9. LORAZEPAM [Concomitant]
  10. TACROLIMUS [Concomitant]

REACTIONS (6)
  - DRUG CLEARANCE DECREASED [None]
  - ALANINE AMINOTRANSFERASE INCREASED [None]
  - DISEASE RECURRENCE [None]
  - CLOSTRIDIAL INFECTION [None]
  - ACUTE MYELOID LEUKAEMIA [None]
  - DRUG INTERACTION [None]
